FAERS Safety Report 12119465 (Version 3)
Quarter: 2018Q4

REPORT INFORMATION
  Report Type: Spontaneous
  Country: CA (occurrence: CA)
  Receive Date: 20160226
  Receipt Date: 20181001
  Transmission Date: 20190204
  Serious: Yes (Hospitalization)
  Sender: FDA-Public Use
  Company Number: CA-PFIZER INC-2016106936

PATIENT
  Age: 14 Month
  Sex: Male
  Weight: 9.7 kg

DRUGS (2)
  1. ADVIL PEDIATRIC DROPS FEVER FROM COLDS OR FLU [Suspect]
     Active Substance: IBUPROFEN
     Indication: PYREXIA
     Dosage: UNK
     Dates: start: 20160114
  2. ADVIL PEDIATRIC DROPS FEVER FROM COLDS OR FLU [Suspect]
     Active Substance: IBUPROFEN
     Indication: NASOPHARYNGITIS
     Dosage: 1.4 ML, EVERY 4 HRS
     Route: 048

REACTIONS (6)
  - Recalled product administered [Recovered/Resolved]
  - Product complaint [Recovered/Resolved]
  - Feeling hot [Recovered/Resolved]
  - Drug ineffective [Recovered/Resolved]
  - Poor quality product administered [Recovered/Resolved]
  - Seizure [Recovered/Resolved]

NARRATIVE: CASE EVENT DATE: 20160114
